FAERS Safety Report 14180027 (Version 1)
Quarter: 2017Q4

REPORT INFORMATION
  Report Type: Report from Study
  Country: US (occurrence: US)
  Receive Date: 20171110
  Receipt Date: 20171110
  Transmission Date: 20180321
  Serious: Yes (Other)
  Sender: FDA-Public Use
  Company Number: US-ALEXION PHARMACEUTICALS INC.-A201711881

PATIENT
  Sex: Male

DRUGS (1)
  1. STRENSIQ [Suspect]
     Active Substance: ASFOTASE ALFA
     Indication: HYPOPHOSPHATASIA
     Dosage: UNK
     Route: 065

REACTIONS (8)
  - Headache [Unknown]
  - Malaise [Unknown]
  - Inadequate haemodialysis [Unknown]
  - Pain [Unknown]
  - Insomnia [Unknown]
  - Prostate cancer [Unknown]
  - Fatigue [Unknown]
  - Weight decreased [Unknown]
